FAERS Safety Report 25331879 (Version 4)
Quarter: 2025Q4

REPORT INFORMATION
  Report Type: Spontaneous
  Country: US (occurrence: US)
  Receive Date: 20250519
  Receipt Date: 20251008
  Transmission Date: 20260118
  Serious: Yes (Hospitalization, Other)
  Sender: CIPLA
  Company Number: US-CIPLA (EU) LIMITED-2025US06114

PATIENT

DRUGS (23)
  1. LENALIDOMIDE [Suspect]
     Active Substance: LENALIDOMIDE
     Indication: Plasma cell myeloma
     Dosage: 10 MILLIGRAM, QD (21 ON 7 OFF)
     Route: 048
     Dates: start: 20250303, end: 20250322
  2. LENALIDOMIDE [Suspect]
     Active Substance: LENALIDOMIDE
     Dosage: 10 MILLIGRAM, QD (TAKE 1 CAPSULE FOR 21 DAYS ON AND 07 DAYS OFF OF EACH 28 DAYS CYCLE)
     Route: 048
  3. LENALIDOMIDE [Suspect]
     Active Substance: LENALIDOMIDE
     Dosage: 10 MILLIGRAM, QD (TAKE 1 CAPSULE FOR 21 DAYS ON AND 07 DAYS OFF OF EACH 28 DAYS CYCLE)
     Route: 048
     Dates: start: 2025
  4. LENALIDOMIDE [Suspect]
     Active Substance: LENALIDOMIDE
     Dosage: 10 MILLIGRAM, QD (TAKE 1 CAPSULE FOR 21 DAYS ON AND 07 DAYS OFF OF EACH 28 DAYS CYCLE)
     Route: 048
     Dates: start: 2025
  5. LENALIDOMIDE [Suspect]
     Active Substance: LENALIDOMIDE
     Dosage: 10 MILLIGRAM, QD (TAKE 1 CAPSULE FOR 14 DAYS ON AND 07 DAYS OFF OF EACH 21 DAYS CYCLE)
     Route: 048
     Dates: start: 2025
  6. LENALIDOMIDE [Suspect]
     Active Substance: LENALIDOMIDE
     Dosage: 10 MILLIGRAM, QD (TAKE 1 CAPSULE FOR 14 DAYS ON AND 07 DAYS OFF OF EACH 21 DAYS CYCLE)
     Route: 048
     Dates: start: 2025
  7. LENALIDOMIDE [Suspect]
     Active Substance: LENALIDOMIDE
     Dosage: 10 MILLIGRAM, QD (TAKE 1 CAPSULE FOR 14 DAYS ON AND 07 DAYS OFF OF EACH 21 DAYS CYCLE)
     Route: 048
  8. LENALIDOMIDE [Suspect]
     Active Substance: LENALIDOMIDE
     Dosage: 10 MILLIGRAM, QD (TAKE 1 CAPSULE FOR 14 DAYS ON AND 07 DAYS OFF OF EACH 21 DAYS CYCLE)
     Route: 048
  9. LENALIDOMIDE AUROBINDO [Concomitant]
     Indication: Product used for unknown indication
     Dosage: 10 MILLIGRAM, QD (TAKE 1 CAPSULE FOR 14 DAYS ON AND 07 DAYS OFF OF EACH 21 DAYS CYCLE)
     Route: 048
  10. LENALIDOMIDE AUROBINDO [Concomitant]
     Dosage: 10 MILLIGRAM, QD (TAKE 1 CAPSULE FOR 14 DAYS ON AND 07 DAYS OFF OF EACH 21 DAYS CYCLE)
     Route: 048
  11. LENALIDOMIDE AUROBINDO [Concomitant]
     Dosage: 10 MILLIGRAM, QD (TAKE 1 CAPSULE FOR 14 DAYS ON AND 07 DAYS OFF OF EACH 21 DAYS CYCLE)
     Route: 048
  12. LENALIDOMIDE AUROBINDO [Concomitant]
     Dosage: 10 MILLIGRAM, QD (TAKE 1 CAPSULE FOR 14 DAYS ON AND 07 DAYS OFF OF EACH 21 DAYS CYCLE)
     Route: 048
  13. LENALIDOMIDE AUROBINDO [Concomitant]
     Dosage: 15 MILLIGRAM, QD (TAKE 1 CAPSULE FOR 14 DAYS ON AND 07 DAYS OFF OF EACH 21 DAYS CYCLE)
     Route: 048
  14. LENALIDOMIDE AUROBINDO [Concomitant]
     Dosage: 15 MILLIGRAM, QD (TAKE 1 CAPSULE FOR 14 DAYS ON AND 07 DAYS OFF OF EACH 21 DAYS CYCLE)
     Route: 048
  15. LENALIDOMIDE AUROBINDO [Concomitant]
     Dosage: 15 MILLIGRAM, QD (TAKE 1 CAPSULE FOR 14 DAYS ON AND 07 DAYS OFF OF EACH 21 DAYS CYCLE)
     Route: 048
  16. FEXOFENADINE [Concomitant]
     Active Substance: FEXOFENADINE HYDROCHLORIDE
     Indication: Product used for unknown indication
     Dosage: UNK
     Route: 065
  17. TELMISARTAN [Concomitant]
     Active Substance: TELMISARTAN
     Indication: Product used for unknown indication
     Dosage: UNK
     Route: 065
  18. TRULICITY [Concomitant]
     Active Substance: DULAGLUTIDE
     Indication: Product used for unknown indication
     Dosage: UNK (STRENGTH: 1.5 MG/0.5 ML)
     Route: 065
  19. FISH OIL\OMEGA-3 FATTY ACIDS [Concomitant]
     Active Substance: FISH OIL\OMEGA-3 FATTY ACIDS
     Indication: Product used for unknown indication
     Dosage: UNK
     Route: 065
  20. PANTOPRAZOLE [Concomitant]
     Active Substance: PANTOPRAZOLE
     Indication: Product used for unknown indication
     Dosage: UNK
     Route: 065
  21. ASPIRIN [Concomitant]
     Active Substance: ASPIRIN
     Indication: Product used for unknown indication
     Dosage: UNK
     Route: 065
  22. EYLEA [Concomitant]
     Active Substance: AFLIBERCEPT
     Indication: Product used for unknown indication
     Dosage: UNK (STRENGTH: 2 MG/0.05 ML)
     Route: 065
  23. DIETARY SUPPLEMENT\HERBALS\MILK THISTLE [Concomitant]
     Active Substance: MILK THISTLE
     Indication: Product used for unknown indication
     Dosage: UNK
     Route: 065

REACTIONS (2)
  - Pleural effusion [Recovered/Resolved]
  - Fall [Unknown]

NARRATIVE: CASE EVENT DATE: 20250322
